FAERS Safety Report 16383034 (Version 1)
Quarter: 2019Q2

REPORT INFORMATION
  Report Type: Spontaneous
  Country: US (occurrence: US)
  Receive Date: 20190513
  Receipt Date: 20190513
  Transmission Date: 20190711
  Serious: Yes (Hospitalization)
  Sender: FDA-Public Use
  Company Number: None

PATIENT
  Sex: Female

DRUGS (5)
  1. CLINDAMYCIN, AMLODIPINE, DULOXETINE, PENTASA [Concomitant]
  2. HUMIRA [Suspect]
     Active Substance: ADALIMUMAB
     Indication: CROHN^S DISEASE
     Dosage: ?          OTHER FREQUENCY:1 PEN EVERY WEEK;?
     Route: 058
     Dates: start: 20160812
  3. FREESTYLE, FLUOCINOINIDE, AZATHRIOPRINE, HYDROCHLOROT [Concomitant]
  4. CYANOCOBALAM, VIT D3, POT CL, LOSARTAN, AMLODIPINE, SYNTHROID [Concomitant]
  5. CYANOCOBALAM INF, ASPIRIN, [Concomitant]

REACTIONS (2)
  - Staphylococcal infection [None]
  - Therapy cessation [None]
